FAERS Safety Report 7393896-5 (Version None)
Quarter: 2011Q2

REPORT INFORMATION
  Report Type: 
  Country: None (occurrence: None)
  Receive Date: 20110405
  Receipt Date: 20110322
  Transmission Date: 20111010
  Serious: Yes (Hospitalization)
  Sender: FDA-Public Use
  Company Number: US-ACTELION-A-US2011-46770

PATIENT

DRUGS (2)
  1. CALCIUM CHANNEL BLOCKERS [Concomitant]
  2. TRACLEER [Suspect]
     Indication: PULMONARY HYPERTENSION
     Dosage: UNK MG, UNK
     Route: 048
     Dates: start: 20060106

REACTIONS (5)
  - PULMONARY FIBROSIS [None]
  - PLEURITIC PAIN [None]
  - CONDITION AGGRAVATED [None]
  - PNEUMONIA [None]
  - DYSPNOEA [None]
